FAERS Safety Report 8475231-4 (Version None)
Quarter: 2012Q2

REPORT INFORMATION
  Report Type: 
  Country: None (occurrence: None)
  Receive Date: 20120628
  Receipt Date: 20120626
  Transmission Date: 20120825
  Serious: Yes (Other)
  Sender: FDA-Public Use
  Company Number: US-ROCHE-1062655

PATIENT
  Sex: Male
  Weight: 118.04 kg

DRUGS (1)
  1. ACCUTANE [Suspect]
     Indication: ECZEMA
     Dates: start: 19940101, end: 19960101

REACTIONS (4)
  - CROHN'S DISEASE [None]
  - INFLAMMATORY BOWEL DISEASE [None]
  - INJURY [None]
  - DEPRESSION [None]
